FAERS Safety Report 22794461 (Version 2)
Quarter: 2025Q2

REPORT INFORMATION
  Report Type: Spontaneous
  Country: PL (occurrence: PL)
  Receive Date: 20230807
  Receipt Date: 20250429
  Transmission Date: 20250716
  Serious: Yes (Life-Threatening, Hospitalization, Other)
  Sender: AUROBINDO
  Company Number: PL-APOTEX-2018AP024448

PATIENT
  Age: 78 Year
  Sex: Male

DRUGS (6)
  1. ZOLPIDEM [Suspect]
     Active Substance: ZOLPIDEM TARTRATE
     Indication: Product used for unknown indication
     Route: 065
  2. ZOLPIDEM [Suspect]
     Active Substance: ZOLPIDEM TARTRATE
     Route: 065
  3. DIGOXIN [Suspect]
     Active Substance: DIGOXIN
     Indication: Product used for unknown indication
     Route: 065
  4. DIGOXIN [Suspect]
     Active Substance: DIGOXIN
     Route: 065
  5. THEOPHYLLINE [Suspect]
     Active Substance: THEOPHYLLINE
     Indication: Product used for unknown indication
     Route: 065
  6. THEOPHYLLINE [Suspect]
     Active Substance: THEOPHYLLINE
     Route: 065

REACTIONS (22)
  - Ventricular extrasystoles [Recovering/Resolving]
  - Electrocardiogram ST segment depression [Recovered/Resolved with Sequelae]
  - Restlessness [Recovering/Resolving]
  - Suicide attempt [Unknown]
  - Normocytic anaemia [Recovering/Resolving]
  - Tachycardia [Recovering/Resolving]
  - General physical health deterioration [Recovering/Resolving]
  - Electrocardiogram abnormal [Unknown]
  - Conduction disorder [Recovering/Resolving]
  - Electrocardiogram repolarisation abnormality [Unknown]
  - Ventricular arrhythmia [Recovering/Resolving]
  - Atrioventricular block first degree [Recovering/Resolving]
  - Aggression [Recovering/Resolving]
  - Hypotension [Recovering/Resolving]
  - Blood pressure increased [Recovering/Resolving]
  - Altered state of consciousness [Recovering/Resolving]
  - Laboratory test abnormal [Unknown]
  - Myocardial infarction [Recovered/Resolved]
  - Toxicity to various agents [Recovered/Resolved]
  - Drug interaction [Unknown]
  - Suicidal ideation [Recovering/Resolving]
  - Intentional overdose [Unknown]
